FAERS Safety Report 13532012 (Version 2)
Quarter: 2017Q2

REPORT INFORMATION
  Report Type: Spontaneous
  Country: US (occurrence: US)
  Receive Date: 20170510
  Receipt Date: 20170619
  Transmission Date: 20170830
  Serious: No
  Sender: FDA-Public Use
  Company Number: US-VERTEX PHARMACEUTICALS-2017-002443

PATIENT
  Sex: Female
  Weight: 17 kg

DRUGS (14)
  1. ORKAMBI [Suspect]
     Active Substance: IVACAFTOR\LUMACAFTOR
     Indication: CYSTIC FIBROSIS
     Dosage: 2 DF, BID
     Route: 048
     Dates: start: 20170427
  2. FLONASE [Concomitant]
     Active Substance: FLUTICASONE PROPIONATE
  3. LACTULOSE. [Concomitant]
     Active Substance: LACTULOSE
  4. PANCREATIC ENZYMES [Concomitant]
     Active Substance: UNSPECIFIED INGREDIENT
  5. PULMOZYME [Concomitant]
     Active Substance: DORNASE ALFA
  6. AQUADEKS [Concomitant]
     Active Substance: MINERALS\VITAMINS
  7. ZINC. [Concomitant]
     Active Substance: ZINC
  8. FLOVENT [Concomitant]
     Active Substance: FLUTICASONE PROPIONATE
  9. ALBUTEROL. [Concomitant]
     Active Substance: ALBUTEROL
     Indication: WHEEZING
  10. URSODIOL. [Concomitant]
     Active Substance: URSODIOL
  11. MIRALAX [Concomitant]
     Active Substance: POLYETHYLENE GLYCOL 3350
  12. SENNA [Concomitant]
     Active Substance: SENNA LEAF\SENNOSIDES\SENNOSIDES A AND B
  13. HYPERTONIC SALINE SOLUTION [Concomitant]
     Active Substance: SODIUM CHLORIDE
  14. ALBUTEROL. [Concomitant]
     Active Substance: ALBUTEROL
     Indication: COUGH
     Dosage: 2.5 MG, BID

REACTIONS (2)
  - Viral upper respiratory tract infection [Unknown]
  - Irritability [Unknown]

NARRATIVE: CASE EVENT DATE: 2017
